FAERS Safety Report 9053963 (Version 2)
Quarter: 2013Q2

REPORT INFORMATION
  Report Type: Spontaneous
  Country: SE (occurrence: SE)
  Receive Date: 20130208
  Receipt Date: 20130501
  Transmission Date: 20140414
  Serious: Yes (Other)
  Sender: FDA-Public Use
  Company Number: PHHY2013SE011388

PATIENT
  Sex: Male

DRUGS (25)
  1. CERTICAN [Suspect]
     Indication: IMMUNOSUPPRESSION
     Dosage: 1 MG, BID
     Dates: start: 20110222
  2. CERTICAN [Suspect]
     Dosage: 1.25 MG, BID
     Dates: start: 20110304
  3. CERTICAN [Suspect]
     Dosage: 1.5 MG, BID
     Dates: start: 20110311
  4. CERTICAN [Suspect]
     Dosage: 1.75 MG, BID
     Dates: start: 20110520
  5. CERTICAN [Suspect]
     Dosage: 2.25 UKN, UNK
     Dates: start: 20111021
  6. CERTICAN [Suspect]
     Dosage: 2.75 UKN, BID
     Dates: start: 20120521
  7. CERTICAN [Suspect]
     Dosage: 3 MG, BID (0.75MG 4X2)
     Dates: start: 20120904
  8. SIMULECT [Suspect]
     Indication: IMMUNOSUPPRESSION
     Dosage: 20 MG X 2 WITH ONE WEEK IN BETWEEN TREATMENTS
     Dates: start: 20111202
  9. PROGRAF [Concomitant]
     Dosage: 5 MG (1 CAPSULE), BID
  10. PROGRAF [Concomitant]
     Dosage: (4 CAPSULES) 1 MG, BID
  11. PROGRAF [Concomitant]
     Dosage: 5.5 UKN, BID
     Dates: start: 20110222
  12. PROGRAF [Concomitant]
     Dosage: 10 MG, BID
     Dates: start: 20110304, end: 20111021
  13. PREDNISOLON [Concomitant]
     Indication: PROPHYLAXIS AGAINST TRANSPLANT REJECTION
     Dosage: 10 MG (1 TABLET), QD
  14. PREDNISOLON [Concomitant]
     Dosage: UNK
     Dates: start: 20110826
  15. MYCOPHENOLATE MOFETIL [Concomitant]
     Indication: ANTIINFLAMMATORY THERAPY
     Dosage: 500 MG (2 TABLETS), BID
  16. METOPROLOL [Concomitant]
     Dosage: UNK
  17. FELODIPIN [Concomitant]
     Dosage: UNK
  18. CATAPRESAN                              /GFR/ [Concomitant]
     Indication: HYPERTENSION
     Dosage: UNK
  19. GAMMAGARD [Concomitant]
     Dosage: 30 G, UNK
     Route: 042
     Dates: start: 20110223
  20. SOLUMEDROL [Concomitant]
     Dosage: 250 MG, QD
     Dates: start: 20110311, end: 20110314
  21. VELCADE [Concomitant]
     Dosage: UNK (4 TREATMENTS. ONE WEEK IN BETWEEN EACH TREATMENT)
     Dates: start: 20110328
  22. ADVAGRAF [Concomitant]
     Dosage: 18 MG, QD
     Dates: start: 20111021
  23. CELLCEPT [Concomitant]
     Dosage: UNK
     Dates: end: 20111227
  24. MYCOPHENOLATMOFETIL ACTAVIS [Concomitant]
     Dosage: UNK
     Dates: start: 20111227
  25. NEORECORMON [Concomitant]
     Dosage: UNK
     Dates: start: 20120210

REACTIONS (3)
  - Renal impairment [Not Recovered/Not Resolved]
  - Contusion [Not Recovered/Not Resolved]
  - Pyrexia [Unknown]
